FAERS Safety Report 5204855-2 (Version None)
Quarter: 2007Q1

REPORT INFORMATION
  Report Type: 
  Country: None (occurrence: None)
  Receive Date: 20070110
  Receipt Date: 20060811
  Transmission Date: 20070707
  Serious: No
  Sender: FDA-Public Use
  Company Number: US-BRISTOL-MYERS SQUIBB COMPANY-13473517

PATIENT
  Age: 55 Year
  Sex: Female

DRUGS (5)
  1. ARIPIPRAZOLE [Suspect]
     Indication: ANXIETY DISORDER
     Dates: start: 20040101, end: 20041201
  2. CYMBALTA [Concomitant]
     Dates: start: 20041101
  3. WELLBUTRIN [Concomitant]
  4. RITALIN [Concomitant]
  5. REMERON [Concomitant]

REACTIONS (1)
  - AKATHISIA [None]
